FAERS Safety Report 11773492 (Version 1)
Quarter: 2015Q4

REPORT INFORMATION
  Report Type: Spontaneous
  Country: NL (occurrence: NL)
  Receive Date: 20151124
  Receipt Date: 20151124
  Transmission Date: 20160304
  Serious: Yes (Other)
  Sender: FDA-Public Use
  Company Number: NL-TEVA-611736ISR

PATIENT
  Age: 66 Year
  Sex: Male

DRUGS (6)
  1. PEMETREXED [Concomitant]
     Active Substance: PEMETREXED
  2. CISPLATIN. [Suspect]
     Active Substance: CISPLATIN
     Indication: NON-SMALL CELL LUNG CANCER
     Dosage: 1 MG/ML DAILY;
  3. OMEPRAZOLE. [Concomitant]
     Active Substance: OMEPRAZOLE
  4. GEMCITABINE [Suspect]
     Active Substance: GEMCITABINE\GEMCITABINE HYDROCHLORIDE
     Indication: NON-SMALL CELL LUNG CANCER
  5. LOSARTAN. [Concomitant]
     Active Substance: LOSARTAN
  6. IBUPROFEN. [Concomitant]
     Active Substance: IBUPROFEN

REACTIONS (1)
  - Arterial thrombosis [Recovered/Resolved]
